FAERS Safety Report 10230354 (Version 1)
Quarter: 2014Q2

REPORT INFORMATION
  Report Type: Spontaneous
  Country: US (occurrence: US)
  Receive Date: 20140611
  Receipt Date: 20140611
  Transmission Date: 20141212
  Serious: Yes (Hospitalization)
  Sender: FDA-Public Use
  Company Number: US-PFIZER INC-2014160017

PATIENT
  Age: 75 Year
  Sex: Female
  Weight: 65.76 kg

DRUGS (2)
  1. NARDIL [Suspect]
     Indication: DEPRESSION
     Dosage: 60 MG, DAILY
     Dates: end: 20140526
  2. SEROQUEL [Concomitant]
     Dosage: 300 MG, DAILY

REACTIONS (2)
  - Hypertensive crisis [Recovered/Resolved]
  - Headache [Recovered/Resolved]
